FAERS Safety Report 14882745 (Version 1)
Quarter: 2018Q2

REPORT INFORMATION
  Report Type: Spontaneous
  Country: BE (occurrence: BE)
  Receive Date: 20180511
  Receipt Date: 20180511
  Transmission Date: 20180711
  Serious: Yes (Hospitalization, Disabling)
  Sender: FDA-Public Use
  Company Number: BE-PFIZER INC-2018189241

PATIENT
  Age: 84 Year
  Sex: Female

DRUGS (2)
  1. LEDERTREXATE [Suspect]
     Active Substance: METHOTREXATE
     Dosage: 7.5 MG, 1X/DAY (BUT THE PATIENT WOULD HAVE RECEIVED 1X/DAY INSTEAD OF 1X/WEEK)
     Route: 048
     Dates: end: 20180319
  2. LEDERTREXATE [Suspect]
     Active Substance: METHOTREXATE
     Indication: RHEUMATOID ARTHRITIS
     Dosage: 7.5 MG, WEEKLY
     Route: 048
     Dates: start: 20180227

REACTIONS (8)
  - Hyponatraemia [Recovering/Resolving]
  - Product use issue [Unknown]
  - Malnutrition [Recovering/Resolving]
  - Mouth ulceration [Recovering/Resolving]
  - Leukocytosis [Recovering/Resolving]
  - Mucosal inflammation [Recovering/Resolving]
  - Pancytopenia [Recovering/Resolving]
  - Thrombocytosis [Recovering/Resolving]

NARRATIVE: CASE EVENT DATE: 20180319
